FAERS Safety Report 12382669 (Version 1)
Quarter: 2016Q2

REPORT INFORMATION
  Report Type: Spontaneous
  Country: FR (occurrence: FR)
  Receive Date: 20160518
  Receipt Date: 20160518
  Transmission Date: 20160815
  Serious: Yes (Hospitalization)
  Sender: FDA-Public Use
  Company Number: FR-SA-2016SA095330

PATIENT
  Age: 83 Year
  Sex: Female

DRUGS (5)
  1. VISIPAQUE [Suspect]
     Active Substance: IODIXANOL
     Indication: ARTERIOGRAM CORONARY
     Dosage: STRENGTH: 320  MG   I/ML?ROUTE: IAR?FREQUENCY: 126 ML, 1 IN 1 SINGLE DOSE
     Dates: start: 20140811, end: 20140811
  2. RILMENIDINE [Concomitant]
     Active Substance: RILMENIDINE
  3. LASILIX [Suspect]
     Active Substance: FUROSEMIDE
     Route: 048
     Dates: end: 20140814
  4. KARDEGIC [Concomitant]
     Active Substance: ASPIRIN LYSINE
     Dosage: 160 MG?IN SACHET
  5. LERCAPRESS [Suspect]
     Active Substance: ENALAPRIL MALEATE\LERCANIDIPINE HYDROCHLORIDE
     Indication: HYPERTENSION
     Dosage: 20  MG/10  MG
     Route: 048
     Dates: end: 20140814

REACTIONS (1)
  - Acute kidney injury [Recovered/Resolved]

NARRATIVE: CASE EVENT DATE: 20140813
